FAERS Safety Report 25917750 (Version 1)
Quarter: 2025Q4

REPORT INFORMATION
  Report Type: Spontaneous
  Country: GB (occurrence: GB)
  Receive Date: 20251014
  Receipt Date: 20251014
  Transmission Date: 20260118
  Serious: Yes (Other)
  Sender: AUROBINDO
  Company Number: GB-BAXTER-2025BAX021814

PATIENT
  Sex: Female

DRUGS (4)
  1. ACYCLOVIR [Suspect]
     Active Substance: ACYCLOVIR
     Indication: Product used for unknown indication
     Dosage: 800 MILLIGRAM, ONCE A DAY (~400 MG, BID (DAILY))
     Route: 048
     Dates: start: 202507
  2. INFLIXIMAB [Suspect]
     Active Substance: INFLIXIMAB
     Indication: Colitis ulcerative
     Dosage: 270 MILLIGRAM (270 MG, 8 WEEKLY, CONCENTRATION:1MG)
     Route: 042
  3. SODIUM CHLORIDE [Suspect]
     Active Substance: SODIUM CHLORIDE
     Indication: Catheter management
     Dosage: UNK (0.9% SODIUM CHLORIDE PRE AND POST INFUSION)
     Route: 065
  4. FUCIDIN [Suspect]
     Active Substance: FUSIDATE SODIUM
     Indication: Product used for unknown indication
     Dosage: UNK
     Route: 065
     Dates: start: 20250807

REACTIONS (5)
  - Impetigo [Unknown]
  - Rash [Unknown]
  - Scab [Unknown]
  - Blister [Unknown]
  - Skin weeping [Unknown]

NARRATIVE: CASE EVENT DATE: 20250716
